FAERS Safety Report 13199122 (Version 1)
Quarter: 2017Q1

REPORT INFORMATION
  Report Type: Spontaneous
  Country: US (occurrence: US)
  Receive Date: 20170208
  Receipt Date: 20170208
  Transmission Date: 20170428
  Serious: No
  Sender: FDA-Public Use
  Company Number: US-AEGERION PHARMACEUTICAL INC.-AEGR002768

PATIENT
  Sex: Male
  Weight: 72.56 kg

DRUGS (3)
  1. MYALEPT [Suspect]
     Active Substance: METRELEPTIN
     Dosage: 2.5 MG (0.5 ML OR 50 UNITS), QD
     Route: 058
     Dates: start: 201606
  2. MYALEPT [Suspect]
     Active Substance: METRELEPTIN
     Indication: LIPODYSTROPHY ACQUIRED
     Dosage: UNK
     Route: 058
  3. HUMULIN R [Concomitant]
     Active Substance: INSULIN HUMAN
     Indication: PRODUCT USED FOR UNKNOWN INDICATION
     Dosage: U-500 KWIKPEN, UNK

REACTIONS (4)
  - Arthralgia [Unknown]
  - Weight decreased [Unknown]
  - Therapy cessation [Recovered/Resolved]
  - Injection site pain [Unknown]

NARRATIVE: CASE EVENT DATE: 2016
